FAERS Safety Report 21391709 (Version 2)
Quarter: 2022Q4

REPORT INFORMATION
  Report Type: Spontaneous
  Country: JP (occurrence: JP)
  Receive Date: 20220929
  Receipt Date: 20221018
  Transmission Date: 20230112
  Serious: Yes (Hospitalization, Other)
  Sender: FDA-Public Use
  Company Number: JP-PFIZER INC-2020482089

PATIENT
  Age: 7 Decade
  Sex: Female

DRUGS (1)
  1. XALKORI [Suspect]
     Active Substance: CRIZOTINIB
     Dosage: 400 MG, DAILY
     Route: 048
     Dates: start: 202011

REACTIONS (7)
  - Myasthenia gravis [Recovering/Resolving]
  - Pneumonia bacterial [Unknown]
  - Lumbar vertebral fracture [Unknown]
  - Fall [Unknown]
  - Hepatic function abnormal [Recovering/Resolving]
  - Liver disorder [Recovering/Resolving]
  - Neoplasm progression [Unknown]
